FAERS Safety Report 4269967-9 (Version None)
Quarter: 2004Q1

REPORT INFORMATION
  Report Type: 
  Country: None (occurrence: None)
  Receive Date: 20040112
  Receipt Date: 20031229
  Transmission Date: 20041129
  Serious: Yes (Hospitalization)
  Sender: FDA-Public Use
  Company Number: NSADSS2003009062

PATIENT
  Age: 70 Year
  Sex: Female

DRUGS (6)
  1. REMICADE [Suspect]
     Indication: RHEUMATOID ARTHRITIS
     Dosage: INTRAVENOUS DRIP
     Route: 041
     Dates: start: 20001211
  2. EVISTA [Concomitant]
  3. METHOTREXATE [Concomitant]
  4. FOLIC ACID [Concomitant]
  5. CALCIUM (CALCIUM) [Concomitant]
  6. CENTRUM SILVER (CENTRUM SILVER) [Concomitant]

REACTIONS (7)
  - ABDOMINAL PAIN [None]
  - CHOLELITHIASIS [None]
  - DIVERTICULAR PERFORATION [None]
  - ILEUS PARALYTIC [None]
  - NAUSEA [None]
  - PERITONITIS [None]
  - VOMITING [None]
